FAERS Safety Report 11324163 (Version 2)
Quarter: 2015Q3

REPORT INFORMATION
  Report Type: Spontaneous
  Country: US (occurrence: US)
  Receive Date: 20150730
  Receipt Date: 20150923
  Transmission Date: 20151125
  Serious: Yes (Other)
  Sender: FDA-Public Use
  Company Number: US-PFIZER INC-2015252243

PATIENT
  Age: 40 Year
  Sex: Female
  Weight: 57 kg

DRUGS (9)
  1. VITAMIN D2 [Concomitant]
     Active Substance: ERGOCALCIFEROL
     Dosage: 50000 UNIT CAPSULE EVERY WEEK
     Route: 048
     Dates: start: 20150408
  2. LYRICA [Suspect]
     Active Substance: PREGABALIN
     Dosage: 50 MG, 3X/DAY
     Route: 048
     Dates: start: 201505
  3. ATIVAN [Concomitant]
     Active Substance: LORAZEPAM
     Dosage: 0.5 MG TABLET EVERY DAY AS NEEDED
     Route: 048
     Dates: start: 20141112
  4. LYRICA [Suspect]
     Active Substance: PREGABALIN
     Indication: FIBROMYALGIA
     Dosage: 50 MG, 1X/DAY
     Route: 048
     Dates: start: 20150429
  5. FOLIC ACID. [Concomitant]
     Active Substance: FOLIC ACID
     Dosage: 2 MG, DAILY
     Dates: start: 20150507
  6. TIZANIDINE. [Concomitant]
     Active Substance: TIZANIDINE
     Indication: PAIN
     Dosage: 2 MG CAPSULE EVERY 12 HOURS AS NEEDED
     Dates: start: 20150408
  7. PROPRANOLOL ER [Concomitant]
     Dosage: 60 MG, DAILY
     Route: 048
     Dates: start: 20141003
  8. METHOTREXATE SODIUM. [Concomitant]
     Active Substance: METHOTREXATE SODIUM
     Dosage: 12.5 MG, WEEKLY
     Dates: start: 20150507
  9. AMITRIPTYLINE [Concomitant]
     Active Substance: AMITRIPTYLINE
     Dosage: 50 MG, DAILY
     Route: 048
     Dates: start: 20141117

REACTIONS (18)
  - Condition aggravated [Unknown]
  - Headache [Unknown]
  - Gait disturbance [Unknown]
  - Swelling [Unknown]
  - Arthralgia [Unknown]
  - Insomnia [Unknown]
  - Musculoskeletal pain [Unknown]
  - Paraesthesia [Unknown]
  - Fatigue [Unknown]
  - Mobility decreased [Unknown]
  - Depression [Unknown]
  - Fibromyalgia [Unknown]
  - Joint swelling [Unknown]
  - Oedema peripheral [Unknown]
  - Meningioma [Unknown]
  - Malaise [Unknown]
  - Oedema [Unknown]
  - Arthritis [Unknown]
